FAERS Safety Report 8250194-5 (Version None)
Quarter: 2012Q1

REPORT INFORMATION
  Report Type: 
  Country: None (occurrence: None)
  Receive Date: 20120328
  Receipt Date: 20120321
  Transmission Date: 20120608
  Serious: Yes (Hospitalization)
  Sender: FDA-Public Use
  Company Number: 2012SP015490

PATIENT
  Age: 50 Year
  Sex: Male

DRUGS (7)
  1. BETAMETHASONE SODIUM PHOSPHATE [Suspect]
     Indication: TRACHEITIS
     Dates: start: 20100731, end: 20100803
  2. ART [Concomitant]
  3. AUGMENTIN '125' [Concomitant]
  4. ENALAPRIL MALEATE [Concomitant]
  5. ULTRALEVURE [Concomitant]
  6. LAMISIL [Concomitant]
  7. HELICIDINE [Concomitant]

REACTIONS (4)
  - PANCREATIC CYST [None]
  - CALCULUS BLADDER [None]
  - PANCREATITIS ACUTE [None]
  - INTRADUCTAL PAPILLARY MUCINOUS NEOPLASM [None]
